FAERS Safety Report 17102098 (Version 2)
Quarter: 2019Q4

REPORT INFORMATION
  Report Type: Spontaneous
  Country: US (occurrence: US)
  Receive Date: 20191202
  Receipt Date: 20191218
  Transmission Date: 20200122
  Serious: No
  Sender: FDA-Public Use
  Company Number: US-BIOGEN-2019BI00811383

PATIENT
  Age: 11 Year
  Sex: Female

DRUGS (2)
  1. SPINRAZA [Suspect]
     Active Substance: NUSINERSEN
     Indication: SPINAL MUSCULAR ATROPHY
     Route: 065
     Dates: start: 20191120
  2. VERSED [Concomitant]
     Active Substance: MIDAZOLAM HYDROCHLORIDE
     Indication: PRODUCT USED FOR UNKNOWN INDICATION
     Route: 065

REACTIONS (4)
  - Post lumbar puncture syndrome [Not Recovered/Not Resolved]
  - Somnolence [Unknown]
  - Back pain [Not Recovered/Not Resolved]
  - Procedural vomiting [Not Recovered/Not Resolved]

NARRATIVE: CASE EVENT DATE: 20191121
